FAERS Safety Report 22115126 (Version 1)
Quarter: 2023Q1

REPORT INFORMATION
  Report Type: Spontaneous
  Country: US (occurrence: US)
  Receive Date: 20230320
  Receipt Date: 20230320
  Transmission Date: 20230418
  Serious: No
  Sender: FDA-Public Use
  Company Number: US-PFIZER INC-202300116808

PATIENT
  Age: 46 Year
  Sex: Female

DRUGS (4)
  1. PAXLOVID [Suspect]
     Active Substance: NIRMATRELVIR\RITONAVIR
     Indication: COVID-19 treatment
     Dates: start: 20220921
  2. ESTRADIOL [Concomitant]
     Active Substance: ESTRADIOL
     Dates: start: 20220402, end: 20230118
  3. ESTRADIOL [Concomitant]
     Active Substance: ESTRADIOL
     Dates: start: 20220402, end: 20230118
  4. PROGESTERONE [Concomitant]
     Active Substance: PROGESTERONE

REACTIONS (1)
  - Hypertension [Not Recovered/Not Resolved]

NARRATIVE: CASE EVENT DATE: 20230105
